FAERS Safety Report 18382348 (Version 2)
Quarter: 2022Q1

REPORT INFORMATION
  Report Type: Spontaneous
  Country: JP (occurrence: JP)
  Receive Date: 20201014
  Receipt Date: 20220125
  Transmission Date: 20220423
  Serious: Yes (Other)
  Sender: FDA-Public Use
  Company Number: JP-DSJP-DSJ-2020-129207

PATIENT
  Age: 67 Year
  Sex: Female

DRUGS (4)
  1. PRASUGREL HYDROCHLORIDE [Suspect]
     Active Substance: PRASUGREL HYDROCHLORIDE
     Indication: Cerebrovascular disorder
     Dosage: 20 MG, QD
     Route: 065
  2. PRASUGREL HYDROCHLORIDE [Suspect]
     Active Substance: PRASUGREL HYDROCHLORIDE
     Dosage: 3.75 MG, QD
     Route: 065
  3. ASPIRIN                            /00002701/ [Concomitant]
     Indication: Cerebrovascular disorder
     Dosage: 300MG/DAY
     Route: 065
  4. ASPIRIN                            /00002701/ [Concomitant]
     Dosage: 100MG/DAY
     Route: 065

REACTIONS (2)
  - Aneurysm [Recovering/Resolving]
  - Off label use [Unknown]
